FAERS Safety Report 5147024-7 (Version None)
Quarter: 2006Q4

REPORT INFORMATION
  Report Type: 
  Country: None (occurrence: None)
  Receive Date: 20061109
  Receipt Date: 20061026
  Transmission Date: 20070319
  Serious: Yes (Other)
  Sender: FDA-Public Use
  Company Number: DE-ELI_LILLY_AND_COMPANY-DE200611000013

PATIENT
  Age: 26 Year
  Sex: Male

DRUGS (4)
  1. CYMBALTA [Suspect]
     Dosage: 30 MG, EACH EVENING
     Route: 048
     Dates: start: 20060201
  2. VALPROATE SODIUM [Concomitant]
     Dosage: 450 MG, DAILY (1/D)
     Route: 048
  3. NEXIUM [Concomitant]
     Dosage: 20 MG, UNK
     Route: 048
  4. LAMOTRIGINE [Concomitant]
     Dosage: 25 MG, UNK
     Route: 048

REACTIONS (2)
  - DRUG WITHDRAWAL SYNDROME [None]
  - WEIGHT INCREASED [None]
